FAERS Safety Report 18766635 (Version 1)
Quarter: 2021Q1

REPORT INFORMATION
  Report Type: Report from Study
  Country: US (occurrence: US)
  Receive Date: 20210121
  Receipt Date: 20210121
  Transmission Date: 20210419
  Serious: No
  Sender: FDA-Public Use
  Company Number: US-BIOVITRUM-2020US5523

PATIENT
  Age: 63 Year
  Sex: Male

DRUGS (3)
  1. COLCHICINE. [Concomitant]
     Active Substance: COLCHICINE
  2. KINERET [Suspect]
     Active Substance: ANAKINRA
     Indication: PERICARDIAL DISEASE
     Route: 058
     Dates: start: 20201001
  3. PREDNISONE. [Concomitant]
     Active Substance: PREDNISONE

REACTIONS (12)
  - Injection site discolouration [Recovering/Resolving]
  - Inflammation [Unknown]
  - Injection site erythema [Recovering/Resolving]
  - Fatigue [Unknown]
  - Injection site reaction [Recovering/Resolving]
  - Injection site pruritus [Recovering/Resolving]
  - Frustration tolerance decreased [Unknown]
  - Emotional disorder [Unknown]
  - Disturbance in attention [Unknown]
  - Viral infection [Unknown]
  - Off label use [Not Recovered/Not Resolved]
  - Injection site pain [Unknown]

NARRATIVE: CASE EVENT DATE: 20201001
